FAERS Safety Report 14301094 (Version 2)
Quarter: 2018Q2

REPORT INFORMATION
  Report Type: Spontaneous
  Country: US (occurrence: US)
  Receive Date: 20171219
  Receipt Date: 20180507
  Transmission Date: 20180711
  Serious: No
  Sender: FDA-Public Use
  Company Number: US-PFIZER INC-2017535965

PATIENT
  Sex: Female
  Weight: 91.61 kg

DRUGS (4)
  1. TAXOTERE [Suspect]
     Active Substance: DOCETAXEL
     Indication: BREAST CANCER
     Dosage: ONE CYCLE, AT 190 MG FOR 60 MINUTES
     Route: 042
     Dates: start: 20070621, end: 20070621
  2. DOCETAXEL. [Suspect]
     Active Substance: DOCETAXEL
     Indication: BREAST CANCER
     Dosage: ONE CYCLE, AT 190 MG FOR 60 MINUTES
     Route: 042
     Dates: start: 20070621, end: 20070621
  3. DOCETAXEL. [Suspect]
     Active Substance: DOCETAXEL
     Indication: BREAST CANCER
     Dosage: ONE CYCLE, AT 190 MG FOR 60 MINUTES
     Route: 042
     Dates: start: 20070621, end: 20070621
  4. DOCEFREZ [Suspect]
     Active Substance: DOCETAXEL ANHYDROUS
     Indication: BREAST CANCER
     Dosage: ONE CYCLE, AT 190 MG FOR 60 MINUTES
     Route: 042
     Dates: start: 20070621, end: 20070621

REACTIONS (1)
  - Alopecia [Not Recovered/Not Resolved]

NARRATIVE: CASE EVENT DATE: 2007
